FAERS Safety Report 15856312 (Version 2)
Quarter: 2019Q1

REPORT INFORMATION
  Report Type: Spontaneous
  Country: GB (occurrence: GB)
  Receive Date: 20190123
  Receipt Date: 20190305
  Transmission Date: 20190417
  Serious: Yes (Hospitalization)
  Sender: FDA-Public Use
  Company Number: GB-ROCHE-2245972

PATIENT
  Age: 77 Year
  Sex: Male

DRUGS (2)
  1. PHENYTOIN SODIUM. [Interacting]
     Active Substance: PHENYTOIN SODIUM
     Indication: EPILEPSY
     Route: 065
  2. CAPECITABINE. [Suspect]
     Active Substance: CAPECITABINE
     Indication: COLON CANCER
     Dosage: SECOND CYCLE
     Route: 065

REACTIONS (2)
  - Potentiating drug interaction [Unknown]
  - Nervous system disorder [Recovered/Resolved]
